FAERS Safety Report 9063632 (Version 2)
Quarter: 2013Q1

REPORT INFORMATION
  Report Type: Report from Study
  Country: US (occurrence: US)
  Receive Date: 20130131
  Receipt Date: 20130211
  Transmission Date: 20140127
  Serious: Yes (Other)
  Sender: FDA-Public Use
  Company Number: US-ABBOTT-12P-163-0996091-00

PATIENT
  Age: 66 None
  Sex: Female

DRUGS (14)
  1. HUMIRA [Suspect]
     Indication: RHEUMATOID ARTHRITIS
     Dates: start: 20120724, end: 20121002
  2. METHYLFOLATE [Concomitant]
     Indication: PRODUCT USED FOR UNKNOWN INDICATION
     Dosage: 7.5MG STARTED WITH METHOTREXATE ABOUT A YEAR AGO
  3. SYNTHROID [Concomitant]
     Indication: HYPOTHYROIDISM
     Dosage: 175 MCG DAILY
  4. MULTIVITAMIN [Concomitant]
     Indication: PRODUCT USED FOR UNKNOWN INDICATION
  5. ACIDOPHILUS [Concomitant]
     Indication: PRODUCT USED FOR UNKNOWN INDICATION
  6. ASA [Concomitant]
     Indication: PROPHYLAXIS
     Dosage: 81 MG DAILY
  7. ALOE VERA [Concomitant]
     Indication: PRODUCT USED FOR UNKNOWN INDICATION
  8. CALCIUM [Concomitant]
     Indication: PRODUCT USED FOR UNKNOWN INDICATION
  9. FLAX SEED OIL [Concomitant]
     Indication: PRODUCT USED FOR UNKNOWN INDICATION
  10. MAGNESIUM [Concomitant]
     Indication: PRODUCT USED FOR UNKNOWN INDICATION
  11. POTASSIUM [Concomitant]
     Indication: PRODUCT USED FOR UNKNOWN INDICATION
     Dosage: 99 MG DAILY
  12. VITAMIN D3 [Concomitant]
     Indication: PRODUCT USED FOR UNKNOWN INDICATION
     Dosage: 1000 IU DAILY
  13. VITAMIN K [Concomitant]
     Indication: PRODUCT USED FOR UNKNOWN INDICATION
  14. ZINC [Concomitant]
     Indication: PRODUCT USED FOR UNKNOWN INDICATION

REACTIONS (7)
  - Cataract [Unknown]
  - Urinary tract infection [Recovered/Resolved]
  - Swelling [Unknown]
  - Dysphagia [Not Recovered/Not Resolved]
  - Choking [Unknown]
  - Hepatic enzyme increased [Recovering/Resolving]
  - Gastrointestinal stromal tumour [Not Recovered/Not Resolved]
